FAERS Safety Report 16944970 (Version 1)
Quarter: 2019Q4

REPORT INFORMATION
  Report Type: Spontaneous
  Country: BE (occurrence: BE)
  Receive Date: 20191022
  Receipt Date: 20191022
  Transmission Date: 20200122
  Serious: Yes (Death, Hospitalization)
  Sender: FDA-Public Use
  Company Number: BE-TEVA-2019-BE-1127300

PATIENT
  Age: 72 Year
  Sex: Male
  Weight: 77.9 kg

DRUGS (22)
  1. NUTROF OMEGA [Concomitant]
  2. DAFALGAN [Concomitant]
     Active Substance: ACETAMINOPHEN
  3. ATROPINE. [Concomitant]
     Active Substance: ATROPINE
  4. LEUCOVORIN. [Suspect]
     Active Substance: LEUCOVORIN
     Indication: COLORECTAL CANCER METASTATIC
     Dosage: 759 MG, FORTNIGHTY
     Route: 042
     Dates: start: 20170630
  5. EMCONCOR [Concomitant]
     Active Substance: BISOPROLOL FUMARATE
  6. ZYLORIC [Concomitant]
     Active Substance: ALLOPURINOL
  7. MOVICOL [Concomitant]
     Active Substance: POLYETHYLENE GLYCOL 3350\POTASSIUM CHLORIDE\SODIUM BICARBONATE\SODIUM CHLORIDE
  8. SOLU-MEDROL [Concomitant]
     Active Substance: METHYLPREDNISOLONE SODIUM SUCCINATE
  9. ARCOXIA [Concomitant]
     Active Substance: ETORICOXIB
  10. NEULASTA [Concomitant]
     Active Substance: PEGFILGRASTIM
  11. LASIX [Concomitant]
     Active Substance: FUROSEMIDE
  12. ALOXI [Concomitant]
     Active Substance: PALONOSETRON HYDROCHLORIDE
  13. 5-FLUOROURACIL [Suspect]
     Active Substance: FLUOROURACIL
     Indication: COLORECTAL CANCER METASTATIC
     Dosage: 800 MG, FORTNIGHTY
     Route: 040
     Dates: start: 20170630
  14. IRINOTECAN [Suspect]
     Active Substance: IRINOTECAN
     Indication: COLORECTAL CANCER METASTATIC
     Dosage: 285 MG, FORTNIGHTY
     Route: 042
     Dates: start: 20170630
  15. XANAX [Concomitant]
     Active Substance: ALPRAZOLAM
  16. VITAPORS [Concomitant]
  17. THEALOZ DUO [Concomitant]
  18. NASUMEL [Concomitant]
  19. TERRAMYCINE [Concomitant]
     Active Substance: OXYTETRACYCLINE
  20. PRIMPERAN [Concomitant]
     Active Substance: METOCLOPRAMIDE HYDROCHLORIDE
  21. 5-FLUOROURACIL [Suspect]
     Active Substance: FLUOROURACIL
     Dosage: 3414 MG, FORTNIGHTY
     Route: 040
  22. IMODIUM [Concomitant]
     Active Substance: LOPERAMIDE HYDROCHLORIDE

REACTIONS (2)
  - Gastrointestinal inflammation [Recovered/Resolved]
  - Endocarditis [Fatal]

NARRATIVE: CASE EVENT DATE: 20171113
